FAERS Safety Report 7658275-1 (Version None)
Quarter: 2011Q3

REPORT INFORMATION
  Report Type: 
  Country: None (occurrence: None)
  Receive Date: 20110805
  Receipt Date: 20110725
  Transmission Date: 20111222
  Serious: Yes (Other)
  Sender: FDA-Public Use
  Company Number: US-BAYER-2011-038672

PATIENT
  Sex: Female

DRUGS (33)
  1. NEXIUM [Concomitant]
  2. COLCHICINE [Concomitant]
  3. MAGNEVIST [Suspect]
     Indication: NUCLEAR MAGNETIC RESONANCE IMAGING
  4. GADOLINIUM IN UNSPECIFIED DRUG [Suspect]
     Indication: NUCLEAR MAGNETIC RESONANCE IMAGING BRAIN
     Dosage: UNK
     Dates: start: 20020717, end: 20020717
  5. GANCICLOVIR [Concomitant]
  6. PROCRIT [Concomitant]
  7. EPOGEN [Concomitant]
  8. PROGRAF [Concomitant]
  9. PROGRAF [Concomitant]
  10. PREDNISONE [Concomitant]
  11. DAPSONE [Concomitant]
  12. CARDIZEM [Concomitant]
  13. GADOLINIUM IN UNSPECIFIED DRUG [Suspect]
     Indication: NUCLEAR MAGNETIC RESONANCE IMAGING
     Dosage: UNK
     Dates: start: 20040517, end: 20040517
  14. CYTOVENE [Concomitant]
  15. HYDRALAZINE HCL [Concomitant]
  16. CARDURA [Concomitant]
  17. FUROSEMIDE [Concomitant]
  18. LAMICTAL [Concomitant]
  19. LEVOXYL [Concomitant]
  20. MAGNEVIST [Suspect]
     Indication: ANGIOGRAM
  21. MAGNEVIST [Suspect]
     Indication: VENOGRAM
  22. NEURONTIN [Concomitant]
  23. PLAVIX [Concomitant]
  24. GADOLINIUM IN UNSPECIFIED DRUG [Suspect]
  25. AMIODARONE HCL [Concomitant]
  26. DAPSONE [Concomitant]
  27. ALLOPURINOL [Concomitant]
  28. ROCALTROL [Concomitant]
  29. PREDNISONE [Concomitant]
  30. AMIODARONE HCL [Concomitant]
  31. ATENOLOL [Concomitant]
  32. RENAGEL [Concomitant]
  33. CLONIDINE [Concomitant]

REACTIONS (20)
  - PARAESTHESIA [None]
  - ARTHRALGIA [None]
  - SKIN SWELLING [None]
  - SKIN HYPERPIGMENTATION [None]
  - SKIN HYPOPIGMENTATION [None]
  - MUSCULAR WEAKNESS [None]
  - SKIN INDURATION [None]
  - RASH PAPULAR [None]
  - PAIN IN EXTREMITY [None]
  - SKIN TIGHTNESS [None]
  - BONE PAIN [None]
  - SKIN DISCOLOURATION [None]
  - DRY SKIN [None]
  - RASH ERYTHEMATOUS [None]
  - OEDEMA PERIPHERAL [None]
  - NEPHROGENIC SYSTEMIC FIBROSIS [None]
  - SKIN PLAQUE [None]
  - SKIN DISORDER [None]
  - SKIN HYPERTROPHY [None]
  - OEDEMA [None]
